FAERS Safety Report 16688684 (Version 1)
Quarter: 2019Q3

REPORT INFORMATION
  Report Type: Spontaneous
  Country: US (occurrence: US)
  Receive Date: 20190809
  Receipt Date: 20190809
  Transmission Date: 20191004
  Serious: No
  Sender: FDA-Public Use
  Company Number: US-PURDUE-USA-2019-0147487

PATIENT
  Sex: Female

DRUGS (2)
  1. BUTRANS [Suspect]
     Active Substance: BUPRENORPHINE
     Indication: NEUROPATHY PERIPHERAL
     Dosage: 5 MCG/HR, WEEKLY
     Route: 062
     Dates: start: 201812
  2. BUTRANS [Suspect]
     Active Substance: BUPRENORPHINE
     Dosage: 10 MCG/HR, WEEKLY
     Route: 062

REACTIONS (10)
  - Skin texture abnormal [Not Recovered/Not Resolved]
  - Neuropathy peripheral [Not Recovered/Not Resolved]
  - Application site pruritus [Recovering/Resolving]
  - Product shape issue [Unknown]
  - Application site burn [Unknown]
  - Application site scar [Recovering/Resolving]
  - Application site erythema [Unknown]
  - Application site rash [Unknown]
  - Application site irritation [Recovering/Resolving]
  - Application site pain [Recovering/Resolving]
